FAERS Safety Report 4474120-X (Version None)
Quarter: 2004Q4

REPORT INFORMATION
  Report Type: 
  Country: None (occurrence: None)
  Receive Date: 20041008
  Receipt Date: 20040929
  Transmission Date: 20050328
  Serious: No
  Sender: FDA-Public Use
  Company Number: 04H-028-0275890-00

PATIENT
  Age: 47 Year
  Sex: Female

DRUGS (5)
  1. DOBUTAMINE HCL [Suspect]
     Indication: HYPERTROPHIC CARDIOMYOPATHY
     Dosage: 5 MCG/KG/MIN, INTRAVENOUS
     Route: 042
  2. DIGOXIN [Concomitant]
  3. FOLATE SODIUM [Concomitant]
  4. FUROSEMIDE [Concomitant]
  5. HEPARIN [Concomitant]

REACTIONS (3)
  - EOSINOPHILIC MYOCARDITIS [None]
  - HYPERSENSITIVITY [None]
  - MYOCARDITIS [None]
